FAERS Safety Report 24825895 (Version 3)
Quarter: 2025Q1

REPORT INFORMATION
  Report Type: Spontaneous
  Country: US (occurrence: US)
  Receive Date: 20250109
  Receipt Date: 20250117
  Transmission Date: 20250409
  Serious: No
  Sender: PFIZER
  Company Number: US-PFIZER INC-202500003835

PATIENT
  Sex: Male

DRUGS (3)
  1. METOPROLOL TARTRATE [Suspect]
     Active Substance: METOPROLOL TARTRATE
  2. ELIQUIS [Suspect]
     Active Substance: APIXABAN
  3. NEURONTIN [Suspect]
     Active Substance: GABAPENTIN

REACTIONS (1)
  - Blood pressure fluctuation [Unknown]
